FAERS Safety Report 24785980 (Version 1)
Quarter: 2024Q4

REPORT INFORMATION
  Report Type: Other
  Country: FR (occurrence: FR)
  Receive Date: 20241229
  Receipt Date: 20241229
  Transmission Date: 20250115
  Serious: Yes (Other)
  Sender: DENTSPLY
  Company Number: FR-DENTSPLY-2024SCDP000366

PATIENT
  Age: 29 Year
  Sex: Female

DRUGS (4)
  1. EPINEPHRINE BITARTRATE\LIDOCAINE HYDROCHLORIDE [Suspect]
     Active Substance: EPINEPHRINE BITARTRATE\LIDOCAINE HYDROCHLORIDE
     Indication: Epidural anaesthesia
     Dosage: 300 MILLIGRAM TOTAL XYLOCAINE ADRENALINE 0.5% SOLUTION FOR INJECTION
     Route: 008
     Dates: start: 20241121, end: 20241121
  2. ROPIVACAINE [Suspect]
     Active Substance: ROPIVACAINE
     Indication: Epidural anaesthesia
     Dosage: 8 MILLIGRAM/HOUR
     Route: 008
     Dates: start: 20241120
  3. SYNTOCINON [Suspect]
     Active Substance: OXYTOCIN
     Indication: Delivery
     Dosage: UNK
     Route: 042
     Dates: start: 20241120, end: 20241120
  4. NOREPINEPHRINE [Concomitant]
     Active Substance: NOREPINEPHRINE\NOREPINEPHRINE BITARTRATE
     Indication: Delivery
     Dosage: 74 MICROGRAM TOTAL
     Route: 042
     Dates: start: 20241120, end: 20241120

REACTIONS (1)
  - Tachycardia [Recovered/Resolved]

NARRATIVE: CASE EVENT DATE: 20241121
